FAERS Safety Report 5989032-X (Version None)
Quarter: 2008Q4

REPORT INFORMATION
  Report Type: 
  Country: None (occurrence: None)
  Receive Date: 20081210
  Receipt Date: 20081205
  Transmission Date: 20090506
  Serious: Yes (Hospitalization)
  Sender: FDA-Public Use
  Company Number: B0549305A

PATIENT
  Age: 70 Year
  Sex: Female

DRUGS (4)
  1. AMOXICILLIN TRIHYDRATE [Suspect]
     Indication: ERYSIPELAS
     Route: 048
     Dates: start: 20080710, end: 20080713
  2. AERIUS [Concomitant]
     Indication: ERYSIPELAS
     Route: 048
     Dates: start: 20080710
  3. AMLOD [Concomitant]
     Dosage: 5MG PER DAY
     Route: 048
  4. PRAVASTATIN SODIUM [Concomitant]
     Dosage: 20MG PER DAY
     Route: 048

REACTIONS (11)
  - BLISTER [None]
  - DERMATITIS [None]
  - ECZEMA [None]
  - ERYTHEMA [None]
  - FEELING HOT [None]
  - PRURIGO [None]
  - RASH VESICULAR [None]
  - SKIN DISORDER [None]
  - SKIN OEDEMA [None]
  - STASIS DERMATITIS [None]
  - TOXIC SKIN ERUPTION [None]
